FAERS Safety Report 21436649 (Version 3)
Quarter: 2022Q4

REPORT INFORMATION
  Report Type: Report from Study
  Country: US (occurrence: None)
  Receive Date: 20221010
  Receipt Date: 20221104
  Transmission Date: 20230113
  Serious: Yes (Other)
  Sender: FDA-Public Use
  Company Number: US-ROCHE-3190928

PATIENT
  Age: 74 Year
  Sex: Female

DRUGS (12)
  1. RANIBIZUMAB [Suspect]
     Active Substance: RANIBIZUMAB
     Indication: Neovascular age-related macular degeneration
     Dosage: DRUG DOSE FIRST ADMINISTERED IS 100 MG/ML,?DOSE LAST STUDY DRUG ADMIN PRIOR AE AND SAE: 10MG/ML?STAR
     Route: 050
     Dates: start: 20220914
  2. RANIBIZUMAB [Suspect]
     Active Substance: RANIBIZUMAB
  3. RANIBIZUMAB [Suspect]
     Active Substance: RANIBIZUMAB
  4. RANIBIZUMAB [Suspect]
     Active Substance: RANIBIZUMAB
  5. RANIBIZUMAB [Suspect]
     Active Substance: RANIBIZUMAB
  6. RANIBIZUMAB [Suspect]
     Active Substance: RANIBIZUMAB
  7. ERGOCALCIFEROL [Concomitant]
     Active Substance: ERGOCALCIFEROL
     Dosage: GIVEN FOR PROPHYLAXIS IS YES ;ONGOING: YES
     Route: 048
  8. KETOROLAC TROMETHAMINE [Concomitant]
     Active Substance: KETOROLAC TROMETHAMINE
     Dosage: GIVEN FOR PROPHYLAXIS IS YES ;ONGOING: YES
     Route: 047
     Dates: start: 20220915
  9. PRED FORTE [Concomitant]
     Active Substance: PREDNISOLONE ACETATE
     Dosage: GIVEN FOR PROPHYLAXIS IS YES ;ONGOING: YES
     Route: 047
     Dates: start: 20220915
  10. VIGAMOX [Concomitant]
     Active Substance: MOXIFLOXACIN HYDROCHLORIDE
     Dosage: GIVEN FOR PROPHYLAXIS IS YES ;ONGOING: NO
     Route: 047
     Dates: start: 20220915
  11. AXCEF [Concomitant]
     Dosage: GIVEN FOR PROPHYLAXIS IS YES ;ONGOING: NO
     Route: 057
     Dates: start: 20220914, end: 20220914
  12. DEXAMETHASONE [Concomitant]
     Active Substance: DEXAMETHASONE
     Dosage: GIVEN FOR PROPHYLAXIS IS YES ;ONGOING: NO
     Route: 057
     Dates: start: 20220914, end: 20220914

REACTIONS (1)
  - Rhegmatogenous retinal detachment [Not Recovered/Not Resolved]

NARRATIVE: CASE EVENT DATE: 20220928
